FAERS Safety Report 7486600-3 (Version None)
Quarter: 2011Q2

REPORT INFORMATION
  Report Type: 
  Country: None (occurrence: None)
  Receive Date: 20110517
  Receipt Date: 20100927
  Transmission Date: 20111010
  Serious: No
  Sender: FDA-Public Use
  Company Number: US-NOVEN-ALL1-2010-05087

PATIENT
  Sex: Male
  Weight: 37.642 kg

DRUGS (3)
  1. FISH OIL [Concomitant]
     Dosage: UNK, UNKNOWN
     Route: 048
  2. DAYTRANA [Suspect]
     Dosage: 15 MG, 1X/DAY:QD
     Route: 062
  3. DAYTRANA [Suspect]
     Dosage: 20 MG, 1X/DAY:QD
     Route: 062

REACTIONS (5)
  - APPLICATION SITE ERYTHEMA [None]
  - SOMNOLENCE [None]
  - DRUG EFFECT INCREASED [None]
  - HEADACHE [None]
  - PRODUCT QUALITY ISSUE [None]
